FAERS Safety Report 5913037-8 (Version None)
Quarter: 2008Q4

REPORT INFORMATION
  Report Type: 
  Country: None (occurrence: None)
  Receive Date: 20081008
  Receipt Date: 20080930
  Transmission Date: 20090506
  Serious: Yes (Other)
  Sender: FDA-Public Use
  Company Number: US-PFIZER INC-2008082806

PATIENT
  Sex: Female
  Weight: 90.909 kg

DRUGS (2)
  1. VIAGRA [Suspect]
     Indication: CARDIOVASCULAR DISORDER
     Dates: start: 20050101
  2. PREVACID [Concomitant]

REACTIONS (3)
  - CYANOSIS [None]
  - DRUG INEFFECTIVE [None]
  - POOR PERIPHERAL CIRCULATION [None]
